FAERS Safety Report 8915739 (Version 3)
Quarter: 2012Q4

REPORT INFORMATION
  Report Type: Report from Study
  Country: KR (occurrence: KR)
  Receive Date: 20121119
  Receipt Date: 20121129
  Transmission Date: 20130627
  Serious: Yes (Hospitalization)
  Sender: FDA-Public Use
  Company Number: KR-GLAXOSMITHKLINE-B0845425A

PATIENT
  Age: 54 Year
  Sex: Female
  Weight: 53 kg

DRUGS (5)
  1. OFATUMUMAB [Suspect]
     Indication: DIFFUSE LARGE B-CELL LYMPHOMA
     Dosage: 1G Cyclic
     Route: 042
     Dates: start: 20121031, end: 20121107
  2. ETOPOSIDE [Suspect]
     Indication: DIFFUSE LARGE B-CELL LYMPHOMA
     Dosage: 153MG Cyclic
     Route: 042
     Dates: start: 20121031, end: 20121102
  3. NEOPLATIN [Suspect]
     Indication: DIFFUSE LARGE B-CELL LYMPHOMA
     Dosage: 433MG Cyclic
     Route: 042
     Dates: start: 20121031
  4. UROMITEXAN [Suspect]
     Indication: DIFFUSE LARGE B-CELL LYMPHOMA
     Dosage: 2551MG Cyclic
     Route: 042
     Dates: start: 20121031, end: 20121102
  5. HOLOXAN [Suspect]
     Indication: DIFFUSE LARGE B-CELL LYMPHOMA
     Dosage: 2551MG Cyclic
     Route: 042
     Dates: start: 20121031, end: 20121102

REACTIONS (1)
  - Febrile neutropenia [Recovered/Resolved]
